FAERS Safety Report 8667274 (Version 2)
Quarter: 2012Q4

REPORT INFORMATION
  Report Type: 
  Country: DE (occurrence: DE)
  Receive Date: 20120717
  Receipt Date: 20120903
  Transmission Date: 20130627
  Serious: Yes (Other)
  Sender: FDA-Public Use
  Company Number: DE-BRISTOL-MYERS SQUIBB COMPANY-16752297

PATIENT
  Age: 52 Year
  Sex: Male

DRUGS (2)
  1. YERVOY [Suspect]
     Indication: METASTASES TO LIVER
     Dosage: 4 cycles from March to 08-Jun-12
     Dates: start: 201203, end: 20120608
  2. YERVOY [Suspect]
     Indication: MALIGNANT MELANOMA
     Dosage: 4 cycles from March to 08-Jun-12
     Dates: start: 201203, end: 20120608

REACTIONS (1)
  - Malignant neoplasm progression [Unknown]
